FAERS Safety Report 14034643 (Version 1)
Quarter: 2017Q4

REPORT INFORMATION
  Report Type: Spontaneous
  Country: US (occurrence: US)
  Receive Date: 20171003
  Receipt Date: 20171003
  Transmission Date: 20180321
  Serious: No
  Sender: FDA-Public Use
  Company Number: US-JUBILANT CADISTA PHARMACEUTICALS-2017JUB00231

PATIENT
  Sex: Female

DRUGS (1)
  1. PANTOPRAZOLE SODIUM. [Suspect]
     Active Substance: PANTOPRAZOLE SODIUM

REACTIONS (5)
  - Muscle tightness [Unknown]
  - Muscle spasms [Unknown]
  - Arthralgia [Unknown]
  - Bone pain [Unknown]
  - Headache [Recovered/Resolved]
